FAERS Safety Report 15304716 (Version 2)
Quarter: 2018Q3

REPORT INFORMATION
  Report Type: Spontaneous
  Country: US (occurrence: US)
  Receive Date: 20180821
  Receipt Date: 20180903
  Transmission Date: 20181010
  Serious: No
  Sender: FDA-Public Use
  Company Number: US-PFIZER INC-2018318980

PATIENT
  Age: 10 Year
  Sex: Male
  Weight: 37.47 kg

DRUGS (5)
  1. GENOTROPIN [Suspect]
     Active Substance: SOMATROPIN
     Indication: GROWTH HORMONE DEFICIENCY
     Dosage: UNK UNK, 1X/DAY (1.4 GENOTROPIN GIVEN WITH GENOTROPIN PEN 12 GIVEN EVERY NIGHT)
     Route: 058
     Dates: start: 201807
  2. GENOTROPIN [Suspect]
     Active Substance: SOMATROPIN
     Dosage: UNK, DAILY (1.4 INJECTION EVERYDAY)
     Dates: start: 201806
  3. GENOTROPIN [Suspect]
     Active Substance: SOMATROPIN
     Dosage: 1.4 MG, UNK (7 DAYS)
     Dates: start: 20180711
  4. GENOTROPIN [Suspect]
     Active Substance: SOMATROPIN
     Dosage: UNK, 1X/DAY (1.4 GENOTROPIN GIVEN WITH GENOTROPIN PEN 12 GIVEN EVERY NIGHT)
     Route: 058
     Dates: start: 201807
  5. GENOTROPIN [Suspect]
     Active Substance: SOMATROPIN
     Indication: GROWTH HORMONE DEFICIENCY
     Dosage: 1.4 MG, 1X/DAY (NIGHTLY (AT BEDTIME))
     Route: 058

REACTIONS (4)
  - Drug dose omission [Unknown]
  - Wrong technique in device usage process [Unknown]
  - Injection site extravasation [Not Recovered/Not Resolved]
  - Device issue [Unknown]
